FAERS Safety Report 7605721-5 (Version None)
Quarter: 2011Q3

REPORT INFORMATION
  Report Type: 
  Country: None (occurrence: None)
  Receive Date: 20110713
  Receipt Date: 20110707
  Transmission Date: 20111222
  Serious: Yes (Hospitalization)
  Sender: FDA-Public Use
  Company Number: CH-PFIZER INC-2011152463

PATIENT
  Age: 72 Year
  Sex: Female

DRUGS (7)
  1. ASPIRIN [Concomitant]
     Dosage: UNK
     Route: 048
  2. ALDACTONE [Suspect]
     Dosage: 1 DF, 1X/DAY
     Route: 048
     Dates: end: 20110227
  3. GLUCOPHAGE [Suspect]
     Dosage: 1 DF, 1X/DAY
     Route: 048
     Dates: end: 20110227
  4. CRESTOR [Concomitant]
     Dosage: UNK
     Route: 048
  5. METOPROLOL TARTRATE [Interacting]
     Dosage: 1 DF, 1X/DAY
     Route: 048
     Dates: end: 20110227
  6. ISOPTIN [Interacting]
     Dosage: 240 MG, 1X/DAY
     Route: 048
     Dates: start: 20110225, end: 20110227
  7. ENALAPRIL MALEATE [Suspect]
     Dosage: UNK
     Route: 048

REACTIONS (6)
  - LACTIC ACIDOSIS [None]
  - HYPERKALAEMIA [None]
  - ATRIOVENTRICULAR BLOCK COMPLETE [None]
  - RENAL FAILURE ACUTE [None]
  - CARDIOGENIC SHOCK [None]
  - DRUG INTERACTION [None]
